FAERS Safety Report 4717352-5 (Version None)
Quarter: 2005Q3

REPORT INFORMATION
  Report Type: 
  Country: None (occurrence: None)
  Receive Date: 20050712
  Receipt Date: 20050425
  Transmission Date: 20060218
  Serious: Yes (Other)
  Sender: FDA-Public Use
  Company Number: PHEH2005US04871

PATIENT
  Sex: Male

DRUGS (1)
  1. GLEEVEC [Suspect]
     Dosage: 600 MG, QD, ORAL;  800 MG, QD, ORAL
     Route: 048

REACTIONS (2)
  - FULL BLOOD COUNT DECREASED [None]
  - WHITE BLOOD CELL COUNT DECREASED [None]
